FAERS Safety Report 17964182 (Version 6)
Quarter: 2021Q2

REPORT INFORMATION
  Report Type: Spontaneous
  Country: JP (occurrence: JP)
  Receive Date: 20200630
  Receipt Date: 20210525
  Transmission Date: 20210717
  Serious: Yes (Other)
  Sender: FDA-Public Use
  Company Number: JP-AMGEN-JPNSP2020103041

PATIENT
  Age: 71 Year
  Sex: Male
  Weight: 56 kg

DRUGS (20)
  1. DARBEPOETIN ALFA [Concomitant]
     Active Substance: DARBEPOETIN ALFA
     Dosage: 10 MUG, QW
     Route: 065
     Dates: start: 20191101, end: 20200724
  2. DARBEPOETIN ALFA [Concomitant]
     Active Substance: DARBEPOETIN ALFA
     Dosage: 15 MUG, Q4W
     Route: 065
     Dates: start: 20200731, end: 20201127
  3. OXAROL [Concomitant]
     Active Substance: MAXACALCITOL
     Dosage: 5 MUG, Q84H
     Route: 065
     Dates: end: 20190614
  4. FOSRENOL [Concomitant]
     Active Substance: LANTHANUM CARBONATE
     Dosage: 750 MG, EVERYDAY
     Route: 048
     Dates: start: 20200902, end: 20210324
  5. NESP [Concomitant]
     Active Substance: DARBEPOETIN ALFA
     Dosage: 5 MUG, QW
     Route: 065
     Dates: end: 20190802
  6. FOSRENOL [Concomitant]
     Active Substance: LANTHANUM CARBONATE
     Dosage: 750 MG, EVERYDAY
     Route: 048
     Dates: end: 20200531
  7. FOSRENOL [Concomitant]
     Active Substance: LANTHANUM CARBONATE
     Dosage: 500 MG, EVERYDAY
     Route: 048
     Dates: start: 20200601, end: 20200901
  8. FESIN [SACCHARATED IRON OXIDE] [Concomitant]
     Active Substance: IRON SUCROSE
     Dosage: 40 MG, QW
     Route: 042
     Dates: start: 20200304, end: 20200515
  9. PARSABIV [Suspect]
     Active Substance: ETELCALCETIDE HYDROCHLORIDE
     Indication: HYPERPARATHYROIDISM SECONDARY
     Dosage: 2.5 MILLIGRAM, 3 TIMES/WK
     Route: 010
     Dates: start: 20190529
  10. OXAROL [Concomitant]
     Active Substance: MAXACALCITOL
     Dosage: 5 MUG, Q84H
     Route: 065
     Dates: start: 20191211, end: 20200117
  11. DARBEPOETIN ALFA [Concomitant]
     Active Substance: DARBEPOETIN ALFA
     Dosage: 40 MUG, QW
     Route: 065
     Dates: start: 20210312
  12. OXAROL [Concomitant]
     Active Substance: MAXACALCITOL
     Dosage: 10 MUG, QW
     Route: 065
     Dates: end: 20190614
  13. OXAROL [Concomitant]
     Active Substance: MAXACALCITOL
     Dosage: 10 MUG, QW
     Route: 065
     Dates: start: 20191211, end: 20200117
  14. OXAROL [Concomitant]
     Active Substance: MAXACALCITOL
     Dosage: 5 MUG, Q56H
     Route: 065
     Dates: start: 20200617
  15. P?TOL [SUCROFERRIC OXYHYDROXIDE] [Concomitant]
     Active Substance: SUCROFERRIC OXYHYDROXIDE
     Dosage: 750 MG, EVERYDAY
     Route: 048
     Dates: start: 20210423
  16. DARBEPOETIN ALFA [Concomitant]
     Active Substance: DARBEPOETIN ALFA
     Dosage: 30 MUG, Q4W
     Route: 065
     Dates: start: 20191004, end: 20191025
  17. DARBEPOETIN ALFA [Concomitant]
     Active Substance: DARBEPOETIN ALFA
     Dosage: 10 MUG, Q4W
     Route: 065
     Dates: start: 20201212, end: 20210305
  18. OXAROL [Concomitant]
     Active Substance: MAXACALCITOL
     Dosage: 10 MUG, Q56H
     Route: 065
     Dates: start: 20190617, end: 20191209
  19. OXAROL [Concomitant]
     Active Substance: MAXACALCITOL
     Dosage: 2.5 MUG, Q56H
     Route: 065
     Dates: start: 20200120, end: 20200615
  20. DARBEPOETIN ALFA [Concomitant]
     Active Substance: DARBEPOETIN ALFA
     Dosage: 10 MUG, Q4W
     Route: 065
     Dates: start: 20190816, end: 20190927

REACTIONS (15)
  - Shunt stenosis [Recovered/Resolved]
  - Shunt stenosis [Recovered/Resolved]
  - Shunt stenosis [Recovered/Resolved]
  - Shunt stenosis [Recovered/Resolved]
  - Shunt stenosis [Recovered/Resolved]
  - Fall [Unknown]
  - Shunt stenosis [Recovered/Resolved]
  - Shunt stenosis [Recovered/Resolved]
  - Shunt occlusion [Recovered/Resolved]
  - Shunt stenosis [Recovered/Resolved]
  - Shunt stenosis [Recovered/Resolved]
  - Contusion [Recovered/Resolved]
  - Shunt stenosis [Recovered/Resolved]
  - Nasopharyngitis [Recovered/Resolved]
  - Shunt stenosis [Recovered/Resolved]

NARRATIVE: CASE EVENT DATE: 20190704
